FAERS Safety Report 19067016 (Version 1)
Quarter: 2021Q1

REPORT INFORMATION
  Report Type: Spontaneous
  Country: GB (occurrence: GB)
  Receive Date: 20210329
  Receipt Date: 20210329
  Transmission Date: 20210420
  Serious: Yes (Life-Threatening, Hospitalization, Other)
  Sender: FDA-Public Use
  Company Number: GB-AMGEN-GBRSP2021030547

PATIENT
  Age: 65 Year
  Sex: Female
  Weight: 63.4 kg

DRUGS (4)
  1. ENBREL [Suspect]
     Active Substance: ETANERCEPT
     Indication: RHEUMATOID ARTHRITIS
     Dosage: 25 MG, 2X/WEEK
     Route: 065
     Dates: start: 20040205, end: 20210115
  2. ENBREL [Suspect]
     Active Substance: ETANERCEPT
     Indication: JUVENILE IDIOPATHIC ARTHRITIS
     Dosage: UNK
     Route: 065
  3. DEXAMETHASONE SODIUM PHOSPHATE. [Concomitant]
     Active Substance: DEXAMETHASONE SODIUM PHOSPHATE
     Dosage: 1MG/ML SINGLE
     Dates: start: 2016
  4. FULTIUM D3 [Concomitant]
     Active Substance: CHOLECALCIFEROL
     Dosage: 800 IU, DAILY
     Dates: start: 2008

REACTIONS (8)
  - Diplopia [Recovering/Resolving]
  - Dacryocystitis [Unknown]
  - Sinusitis [Recovered/Resolved]
  - Lacrimal gland abscess [Unknown]
  - Macular hole [Recovering/Resolving]
  - Central nervous system infection [Unknown]
  - Staphylococcal infection [Unknown]
  - Cellulitis orbital [Not Recovered/Not Resolved]

NARRATIVE: CASE EVENT DATE: 202101
